FAERS Safety Report 10162191 (Version 2)
Quarter: 2014Q2

REPORT INFORMATION
  Report Type: Spontaneous
  Country: US (occurrence: US)
  Receive Date: 20140509
  Receipt Date: 20140509
  Transmission Date: 20141212
  Serious: Yes (Hospitalization, Disabling, Other)
  Sender: FDA-Public Use
  Company Number: US-009507513-1106USA01159

PATIENT
  Sex: Female
  Weight: 64.85 kg

DRUGS (9)
  1. FOSAMAX [Suspect]
     Dosage: 10 MG, QD
     Route: 048
     Dates: start: 199901
  2. FOSAMAX [Suspect]
     Dosage: 70 MG, QW
     Route: 048
     Dates: start: 200001, end: 20090615
  3. FOSAMAX [Suspect]
     Dosage: UNK
     Route: 048
     Dates: start: 200805, end: 20090801
  4. ONE-A-DAY ESSENTIAL VITAMINS [Concomitant]
     Dosage: UNK UNK, QD
  5. GLUCOSAMINE [Concomitant]
     Dosage: UNK UNK, QD
  6. CALCIUM (UNSPECIFIED) (+) VITAMIN D (UNSPECIFIED) [Concomitant]
     Dosage: UNK UNK, QD
  7. MK-9039 [Concomitant]
     Dosage: UNK UNK, QD
  8. HORMONES (UNSPECIFIED) [Concomitant]
     Dates: start: 2000, end: 2002
  9. ALENDRONATE SODIUM [Suspect]
     Dosage: 70 MG, UNK

REACTIONS (74)
  - Femur fracture [Unknown]
  - Upper limb fracture [Unknown]
  - Escherichia urinary tract infection [Unknown]
  - Dehydration [Unknown]
  - Haemorrhagic anaemia [Unknown]
  - Convulsion [Unknown]
  - Basal cell carcinoma [Unknown]
  - Osteoarthritis [Unknown]
  - Tonsillar disorder [Unknown]
  - Adenoidal disorder [Unknown]
  - Neurogenic bladder [Unknown]
  - Lens dislocation [Unknown]
  - Eye disorder [Unknown]
  - Eye disorder [Unknown]
  - Osteoarthritis [Unknown]
  - Pain in extremity [Not Recovered/Not Resolved]
  - Gingival disorder [Unknown]
  - Upper limb fracture [Unknown]
  - Dental caries [Unknown]
  - Glaucoma [Unknown]
  - Gingival disorder [Unknown]
  - Tooth disorder [Unknown]
  - Oral disorder [Unknown]
  - Oral disorder [Unknown]
  - Oral disorder [Unknown]
  - Oxygen saturation decreased [Unknown]
  - Hypotension [Unknown]
  - Device failure [Unknown]
  - Mixed incontinence [Unknown]
  - Upper limb fracture [Unknown]
  - Gallbladder disorder [Unknown]
  - Anxiety [Unknown]
  - Asthma [Unknown]
  - Gait disturbance [Not Recovered/Not Resolved]
  - Bursitis [Unknown]
  - Muscular weakness [Unknown]
  - Urinary incontinence [Unknown]
  - Actinic keratosis [Unknown]
  - Diverticulum [Unknown]
  - Fibrocystic breast disease [Unknown]
  - Adverse event [Unknown]
  - Cystitis [Unknown]
  - Hypertonic bladder [Not Recovered/Not Resolved]
  - Pneumonia [Unknown]
  - Chronic obstructive pulmonary disease [Unknown]
  - Urinary retention [Unknown]
  - Central obesity [Unknown]
  - Urge incontinence [Unknown]
  - Skin candida [Unknown]
  - Atrophic vulvovaginitis [Unknown]
  - Diverticulum intestinal [Unknown]
  - Haemorrhoids [Unknown]
  - Hiatus hernia [Unknown]
  - Retinal degeneration [Unknown]
  - Syncope [Unknown]
  - Left ventricular dysfunction [Unknown]
  - Restless legs syndrome [Unknown]
  - Balance disorder [Unknown]
  - Fall [Unknown]
  - Tachycardia [Unknown]
  - Asthma [Unknown]
  - Spinal column stenosis [Unknown]
  - Gait disturbance [Unknown]
  - Upper limb fracture [Unknown]
  - Foot fracture [Unknown]
  - Periodontitis [Unknown]
  - Syncope [Unknown]
  - Blood pressure increased [Unknown]
  - Osteopenia [Unknown]
  - Sinus disorder [Unknown]
  - Flatulence [Unknown]
  - Diarrhoea [Unknown]
  - Gastrooesophageal reflux disease [Unknown]
  - Arthralgia [Unknown]
